FAERS Safety Report 14586338 (Version 1)
Quarter: 2018Q1

REPORT INFORMATION
  Report Type: Spontaneous
  Country: US (occurrence: US)
  Receive Date: 20180301
  Receipt Date: 20180301
  Transmission Date: 20180509
  Serious: No
  Sender: FDA-Public Use
  Company Number: US-TEVA-773747USA

PATIENT
  Sex: Female

DRUGS (1)
  1. NORTREL 21 DAY [Suspect]
     Active Substance: ETHINYL ESTRADIOL\NORETHINDRONE
     Route: 065
     Dates: start: 2017

REACTIONS (3)
  - Dyspnoea [Unknown]
  - Decreased appetite [Unknown]
  - Libido decreased [Unknown]
